FAERS Safety Report 14925491 (Version 1)
Quarter: 2018Q2

REPORT INFORMATION
  Report Type: Spontaneous
  Country: US (occurrence: US)
  Receive Date: 20180522
  Receipt Date: 20180522
  Transmission Date: 20180711
  Serious: No
  Sender: FDA-Public Use
  Company Number: US-ELI_LILLY_AND_COMPANY-US201805009395

PATIENT
  Age: 22 Year
  Sex: Male
  Weight: 79.4 kg

DRUGS (6)
  1. OLANZAPINE. [Suspect]
     Active Substance: OLANZAPINE
     Indication: BIPOLAR DISORDER
     Dosage: UNK, UNKNOWN
     Route: 065
  2. LITHIUM                            /00033711/ [Interacting]
     Active Substance: LITHIUM ASPARTATE
     Dosage: 900 MG, UNKNOWN
     Route: 065
  3. LATUDA [Interacting]
     Active Substance: LURASIDONE HYDROCHLORIDE
     Dosage: 50 MG, DAILY
     Route: 048
     Dates: start: 201804
  4. LATUDA [Interacting]
     Active Substance: LURASIDONE HYDROCHLORIDE
     Dosage: 40 MG, DAILY
     Route: 048
     Dates: start: 201804, end: 201804
  5. LITHIUM                            /00033711/ [Interacting]
     Active Substance: LITHIUM ASPARTATE
     Indication: BIPOLAR DISORDER
     Dosage: 600 MG, UNK
     Route: 065
  6. LATUDA [Interacting]
     Active Substance: LURASIDONE HYDROCHLORIDE
     Indication: BIPOLAR DISORDER
     Dosage: 20 MG, DAILY
     Route: 048
     Dates: start: 201804, end: 201804

REACTIONS (4)
  - Blepharospasm [Unknown]
  - Hyperventilation [Unknown]
  - Strabismus [Unknown]
  - Drug interaction [Unknown]

NARRATIVE: CASE EVENT DATE: 201804
